FAERS Safety Report 11931306 (Version 1)
Quarter: 2016Q1

REPORT INFORMATION
  Report Type: Spontaneous
  Country: US (occurrence: US)
  Receive Date: 20160120
  Receipt Date: 20160120
  Transmission Date: 20160526
  Serious: Yes (Other)
  Sender: FDA-Public Use
  Company Number: US-BAYER-2016-008477

PATIENT
  Sex: Female
  Weight: 66.21 kg

DRUGS (15)
  1. XALATAN [Concomitant]
     Active Substance: LATANOPROST
     Indication: GLAUCOMA
     Dosage: 1 GTT, BID
     Route: 047
  2. ADVIL [Concomitant]
     Active Substance: IBUPROFEN
     Indication: PROCEDURAL PAIN
     Dosage: 400 MG, UNK
     Route: 048
  3. PRESERVISION EYE VITAMIN AND MINERAL SUPPL. [Concomitant]
     Indication: GLAUCOMA
  4. TIMOLOL. [Concomitant]
     Active Substance: TIMOLOL
     Indication: GLAUCOMA
     Dosage: 1 GTT, BID
  5. CALCIUM [Concomitant]
     Active Substance: CALCIUM
  6. VITAMIN D [Concomitant]
     Active Substance: CHOLECALCIFEROL
     Dosage: 3 DF, UNK
     Route: 048
  7. PRESERVISION EYE VITAMIN AND MINERAL SUPPL. [Concomitant]
     Indication: MACULAR DEGENERATION
     Dosage: 1 DF, BID
     Route: 048
  8. ADVIL [Concomitant]
     Active Substance: IBUPROFEN
     Indication: MUSCULOSKELETAL PAIN
  9. CRANBERRY. [Concomitant]
     Active Substance: CRANBERRY
     Indication: URINARY TRACT INFECTION
     Dosage: 12600 MG, BID
  10. OMEPRAZOLE. [Concomitant]
     Active Substance: OMEPRAZOLE
  11. BAYER GENUINE ASPIRIN [Suspect]
     Active Substance: ASPIRIN
  12. ADVIL [Concomitant]
     Active Substance: IBUPROFEN
     Indication: BACK PAIN
  13. VITAMIN B12 [Concomitant]
     Active Substance: CYANOCOBALAMIN
     Dosage: 3 DF, OM
     Dates: start: 20120204
  14. VITAMIN C [Concomitant]
     Active Substance: ASCORBIC ACID
     Dosage: 500 MG, QD
     Route: 048
  15. RESTASIS [Concomitant]
     Active Substance: CYCLOSPORINE
     Indication: DRY EYE
     Dosage: 1 GTT, BID

REACTIONS (1)
  - Haemorrhage [None]
